FAERS Safety Report 8609337 (Version 3)
Quarter: 2014Q1

REPORT INFORMATION
  Report Type: Spontaneous
  Country: US (occurrence: US)
  Receive Date: 20120612
  Receipt Date: 20140107
  Transmission Date: 20141002
  Serious: Yes (Other)
  Sender: FDA-Public Use
  Company Number: US-ASTRAZENECA-2012SE36071

PATIENT
  Sex: Female

DRUGS (23)
  1. NEXIUM [Suspect]
     Indication: BARRETT^S OESOPHAGUS
     Route: 048
     Dates: start: 2007
  2. NEXIUM [Suspect]
     Indication: GASTROOESOPHAGEAL REFLUX DISEASE
     Route: 048
     Dates: start: 2007
  3. NEXIUM [Suspect]
     Indication: GASTROOESOPHAGEAL REFLUX DISEASE
     Route: 048
     Dates: start: 2007
  4. NEXIUM [Suspect]
     Indication: BARRETT^S OESOPHAGUS
     Route: 048
     Dates: start: 20080904
  5. NEXIUM [Suspect]
     Indication: GASTROOESOPHAGEAL REFLUX DISEASE
     Route: 048
     Dates: start: 20080904
  6. NEXIUM [Suspect]
     Indication: GASTROOESOPHAGEAL REFLUX DISEASE
     Route: 048
     Dates: start: 20080904
  7. NEXIUM [Suspect]
     Indication: BARRETT^S OESOPHAGUS
     Route: 048
     Dates: start: 2011
  8. NEXIUM [Suspect]
     Indication: GASTROOESOPHAGEAL REFLUX DISEASE
     Route: 048
     Dates: start: 2011
  9. NEXIUM [Suspect]
     Indication: GASTROOESOPHAGEAL REFLUX DISEASE
     Route: 048
     Dates: start: 2011
  10. PRILOSEC [Suspect]
     Indication: GASTROOESOPHAGEAL REFLUX DISEASE
     Route: 048
     Dates: start: 1997
  11. PRILOSEC OTC [Suspect]
     Route: 048
     Dates: start: 2005
  12. MYLANTA [Concomitant]
     Dates: start: 2006
  13. PREVACID [Concomitant]
     Indication: GASTROOESOPHAGEAL REFLUX DISEASE
     Dates: start: 2005
  14. MAALOX [Concomitant]
     Dates: start: 2006
  15. ZANTAC [Concomitant]
     Dates: start: 2006
  16. ACIPHEX [Concomitant]
     Dates: start: 2006
  17. PROTONIX [Concomitant]
     Dates: start: 2007
  18. GAVISCON [Concomitant]
  19. TUMS [Concomitant]
     Dosage: DAILY AS NEEDED
  20. CARAFATE [Concomitant]
     Indication: ULCER
  21. CARAFATE [Concomitant]
     Indication: GASTROOESOPHAGEAL REFLUX DISEASE
  22. NEURONTIN [Concomitant]
     Indication: NECK PAIN
  23. METHYLPRED [Concomitant]
     Dates: start: 20100529

REACTIONS (6)
  - Spondylolisthesis [Unknown]
  - Osteoporosis [Unknown]
  - Multiple fractures [Unknown]
  - Arthralgia [Unknown]
  - Arthritis [Unknown]
  - Radiculopathy [Unknown]
